FAERS Safety Report 11503798 (Version 2)
Quarter: 2016Q2

REPORT INFORMATION
  Report Type: Spontaneous
  Country: US (occurrence: US)
  Receive Date: 20150914
  Receipt Date: 20160406
  Transmission Date: 20160815
  Serious: Yes (Hospitalization)
  Sender: FDA-Public Use
  Company Number: US-OTSUKA-2015_009343

PATIENT
  Age: 58 Year
  Sex: Female

DRUGS (4)
  1. DACOGEN [Suspect]
     Active Substance: DECITABINE
     Dosage: UNK
     Route: 065
  2. DACOGEN [Suspect]
     Active Substance: DECITABINE
     Indication: ACUTE MYELOID LEUKAEMIA RECURRENT
     Dosage: UNK
     Route: 042
  3. SORAFENIB [Suspect]
     Active Substance: SORAFENIB
     Dosage: UNK
     Route: 065
  4. SORAFENIB [Suspect]
     Active Substance: SORAFENIB
     Indication: ACUTE MYELOID LEUKAEMIA RECURRENT
     Dosage: 400 MG, 2 IN 1 DAY
     Route: 065

REACTIONS (3)
  - Graft versus host disease [Unknown]
  - Bacteraemia [Unknown]
  - Cardiac failure congestive [Unknown]
